FAERS Safety Report 25483681 (Version 1)
Quarter: 2025Q2

REPORT INFORMATION
  Report Type: Spontaneous
  Country: US (occurrence: None)
  Receive Date: 20250625
  Receipt Date: 20250625
  Transmission Date: 20250717
  Serious: Yes (Other)
  Sender: FDA-CTU
  Company Number: None

PATIENT
  Age: 27 Year
  Sex: Female
  Weight: 64.8 kg

DRUGS (4)
  1. CETIRIZINE HYDROCHLORIDE (ALLERGY) [Suspect]
     Active Substance: CETIRIZINE HYDROCHLORIDE
     Indication: Peripheral swelling
     Dosage: OTHER QUANTITY : 1 TABLET(S);?FREQUENCY : DAILY;?
     Route: 048
     Dates: start: 20220601
  2. ALLEGRA [Suspect]
     Active Substance: FEXOFENADINE HYDROCHLORIDE
  3. Zyrtec/Cetirizine Hydrochloride [Concomitant]
  4. One A Day Women^s Prenatal Vitamin without Iron [Concomitant]

REACTIONS (7)
  - Pruritus [None]
  - Pruritus [None]
  - Pruritus [None]
  - Pruritus [None]
  - Polymorphic eruption of pregnancy [None]
  - Rash [None]
  - Maternal exposure during pregnancy [None]
